FAERS Safety Report 13034112 (Version 1)
Quarter: 2016Q4

REPORT INFORMATION
  Report Type: Spontaneous
  Country: US (occurrence: US)
  Receive Date: 20161216
  Receipt Date: 20161216
  Transmission Date: 20170207
  Serious: No
  Sender: FDA-Public Use
  Company Number: US-ENDO PHARMACEUTICALS INC.-2016-003259

PATIENT
  Age: 54 Year
  Sex: Male
  Weight: 83.99 kg

DRUGS (4)
  1. RHEUMATREX [Suspect]
     Active Substance: METHOTREXATE SODIUM
     Indication: SYMPATHETIC OPHTHALMIA
     Route: 048
     Dates: start: 201510, end: 201603
  2. MYCOPHENOLATE [Concomitant]
     Active Substance: MYCOPHENOLIC ACID
     Indication: SYMPATHETIC OPHTHALMIA
  3. CYCLOSPORINE. [Concomitant]
     Active Substance: CYCLOSPORINE
     Indication: SYMPATHETIC OPHTHALMIA
  4. PREDNISONE TABLETS [Concomitant]
     Active Substance: PREDNISONE
     Indication: SYMPATHETIC OPHTHALMIA

REACTIONS (4)
  - Off label use [Unknown]
  - Photopsia [Recovered/Resolved]
  - Swelling face [Recovered/Resolved]
  - Memory impairment [Recovered/Resolved]

NARRATIVE: CASE EVENT DATE: 201510
